FAERS Safety Report 9490600 (Version 1)
Quarter: 2013Q3

REPORT INFORMATION
  Report Type: Spontaneous
  Country: US (occurrence: None)
  Receive Date: 20130828
  Receipt Date: 20130828
  Transmission Date: 20140515
  Serious: No
  Sender: FDA-Public Use
  Company Number: None

PATIENT
  Age: 72 Year
  Sex: Male
  Weight: 76.4 kg

DRUGS (2)
  1. OMEPRAZOLE [Suspect]
     Indication: GASTRITIS
     Dosage: 40 MG BID PO
     Route: 048
     Dates: start: 20130215, end: 20130711
  2. OMEPRAZOLE [Suspect]
     Indication: DUODENITIS
     Dosage: 40 MG BID PO
     Route: 048
     Dates: start: 20130215, end: 20130711

REACTIONS (1)
  - Rash [None]
